FAERS Safety Report 8484222 (Version 3)
Quarter: 2013Q1

REPORT INFORMATION
  Report Type: Report from Study
  Country: AU (occurrence: AU)
  Receive Date: 20120330
  Receipt Date: 20130102
  Transmission Date: 20140127
  Serious: Yes (Hospitalization)
  Sender: FDA-Public Use
  Company Number: PHHY2012AU026746

PATIENT
  Age: 41 Year
  Sex: Female

DRUGS (1)
  1. CLOZARIL [Suspect]
     Dosage: 525 MG
     Route: 048
     Dates: start: 19960514

REACTIONS (2)
  - Suicidal behaviour [Recovering/Resolving]
  - Intentional self-injury [Recovering/Resolving]
